FAERS Safety Report 9738774 (Version 1)
Quarter: 2013Q4

REPORT INFORMATION
  Report Type: Spontaneous
  Country: US (occurrence: US)
  Receive Date: 20131209
  Receipt Date: 20131209
  Transmission Date: 20140711
  Serious: No
  Sender: FDA-Public Use
  Company Number: US-009507513-1312USA002217

PATIENT
  Age: 61 Year
  Sex: Male

DRUGS (7)
  1. JANUVIA [Suspect]
     Indication: DIABETES MELLITUS
     Dosage: UNK
     Dates: start: 2011
  2. GLUCOPHAGE [Concomitant]
  3. DEXILANT [Concomitant]
  4. ACCUPRIL [Concomitant]
  5. LIVALO [Concomitant]
  6. ASPIRIN [Concomitant]
  7. ALLEGRA [Concomitant]

REACTIONS (2)
  - Oropharyngeal pain [Unknown]
  - Rhinorrhoea [Unknown]
